FAERS Safety Report 6826672-X (Version None)
Quarter: 2010Q3

REPORT INFORMATION
  Report Type: 
  Country: None (occurrence: None)
  Receive Date: 20100709
  Receipt Date: 20100630
  Transmission Date: 20110219
  Serious: Yes (Other)
  Sender: FDA-Public Use
  Company Number: FR-PFIZER INC-2010073236

PATIENT
  Age: 63 Year
  Sex: Female
  Weight: 72 kg

DRUGS (3)
  1. CAMPTOSAR [Suspect]
     Indication: COLORECTAL CANCER METASTATIC
     Dosage: UNK
     Route: 042
     Dates: start: 20100423
  2. CAMPTOSAR [Suspect]
     Dosage: 180 MG/M2, TDD= 326 MG
     Route: 042
     Dates: start: 20100601
  3. AVASTIN [Concomitant]
     Indication: COLORECTAL CANCER METASTATIC
     Dosage: UNK
     Route: 042
     Dates: start: 20100423

REACTIONS (2)
  - SPEECH DISORDER [None]
  - TONGUE DISORDER [None]
